FAERS Safety Report 10004959 (Version 2)
Quarter: 2014Q1

REPORT INFORMATION
  Report Type: Spontaneous
  Country: IT (occurrence: IT)
  Receive Date: 20140312
  Receipt Date: 20140313
  Transmission Date: 20141002
  Serious: Yes (Other)
  Sender: FDA-Public Use
  Company Number: IT-TEVA-465746ISR

PATIENT
  Age: 63 Year
  Sex: 0
  Weight: 57 kg

DRUGS (3)
  1. FLUOROURACILE TEVA [Suspect]
     Indication: PANCREATIC CARCINOMA
     Dosage: 2400 MG/M2 DAILY;
     Route: 042
     Dates: start: 20131125, end: 20140117
  2. IRINOTECAN FRESENIUS [Suspect]
     Indication: PANCREATIC CARCINOMA
     Dosage: 180 MG/M2 DAILY;
     Route: 042
     Dates: start: 20131125, end: 20140117
  3. OXALIPLATINO ACCORD [Suspect]
     Indication: PANCREATIC CARCINOMA
     Dosage: 85 MG/M2 DAILY;
     Route: 042
     Dates: start: 20131125, end: 20140117

REACTIONS (1)
  - Pulmonary embolism [Recovering/Resolving]
